FAERS Safety Report 23293790 (Version 1)
Quarter: 2023Q4

REPORT INFORMATION
  Report Type: Spontaneous
  Country: FI (occurrence: FI)
  Receive Date: 20231213
  Receipt Date: 20231213
  Transmission Date: 20240110
  Serious: Yes (Hospitalization, Other)
  Sender: FDA-Public Use
  Company Number: None

PATIENT
  Age: 63 Year
  Sex: Female

DRUGS (2)
  1. CIMZIA [Suspect]
     Active Substance: CERTOLIZUMAB PEGOL
     Indication: Rheumatoid arthritis
     Dosage: 200 MILLIGRAM, CYCLICAL
     Route: 058
     Dates: start: 20161116, end: 202308
  2. HYDROXYCHLOROQUINE SULFATE [Concomitant]
     Active Substance: HYDROXYCHLOROQUINE SULFATE
     Indication: Rheumatoid arthritis
     Dosage: 1800 MILLIGRAM, WEEKLY (QW)
     Route: 048
     Dates: start: 20170801

REACTIONS (3)
  - Rheumatoid nodule [Recovered/Resolved]
  - Bronchopulmonary aspergillosis [Recovered/Resolved]
  - Granuloma [Recovered/Resolved]

NARRATIVE: CASE EVENT DATE: 20230728
